FAERS Safety Report 6216623-3 (Version None)
Quarter: 2009Q2

REPORT INFORMATION
  Report Type: 
  Country: None (occurrence: None)
  Receive Date: 20090605
  Receipt Date: 20090528
  Transmission Date: 20091009
  Serious: Yes (Hospitalization, Other)
  Sender: FDA-Public Use
  Company Number: PHHY2008JP22479

PATIENT
  Sex: Male

DRUGS (2)
  1. GLEEVEC [Suspect]
     Indication: CHRONIC MYELOID LEUKAEMIA
     Dosage: UNK
     Route: 048
     Dates: start: 20010701
  2. GLEEVEC [Suspect]
     Dosage: 200 MG/DAY
     Dates: start: 20020910

REACTIONS (3)
  - INTESTINAL RESECTION [None]
  - LARGE INTESTINE CARCINOMA [None]
  - OCCULT BLOOD [None]
